FAERS Safety Report 6052258-3 (Version None)
Quarter: 2009Q1

REPORT INFORMATION
  Report Type: 
  Country: None (occurrence: None)
  Receive Date: 20090121
  Receipt Date: 20090105
  Transmission Date: 20090719
  Serious: Yes (Death)
  Sender: FDA-Public Use
  Company Number: 2008S1021497

PATIENT
  Age: 36 Year
  Sex: Female

DRUGS (9)
  1. AZATHIOPRINE [Suspect]
     Indication: IMMUNOSUPPRESSION
     Dosage: 200 MG; BD, 100 MG; TWICE A DAY
     Dates: end: 20050601
  2. AZATHIOPRINE [Suspect]
     Indication: IMMUNOSUPPRESSION
     Dosage: 200 MG; BD, 100 MG; TWICE A DAY
     Dates: end: 20050601
  3. PREDNISOLONE [Suspect]
     Indication: GRAFT VERSUS HOST DISEASE
     Dosage: 1 MG/KG; DAILY, 60 MG; DAILY
  4. PREDNISOLONE [Suspect]
     Indication: IMMUNOSUPPRESSION
     Dosage: 1 MG/KG; DAILY, 60 MG; DAILY
  5. MYCOPHENOLATE MOFETIL [Suspect]
     Indication: IMMUNOSUPPRESSION
  6. CYCLOSPORINE [Suspect]
     Indication: IMMUNOSUPPRESSION
     Dosage: 120 MG/KG;
  7. CAMPATH [Suspect]
     Indication: DRUG USE FOR UNKNOWN INDICATION
     Dosage: 20 MG; INTRAVENOUS
     Route: 042
  8. THALIDOMIDE [Suspect]
     Indication: DRUG USE FOR UNKNOWN INDICATION
     Dates: start: 20051001
  9. INTERFERON-ALPHA (INTERFERON ALFA-2A) [Concomitant]

REACTIONS (14)
  - ACUTE MYELOID LEUKAEMIA [None]
  - ANTINUCLEAR ANTIBODY POSITIVE [None]
  - BONE MARROW TRANSPLANT [None]
  - COMPLICATIONS OF BONE MARROW TRANSPLANT [None]
  - DRUG EFFECT DECREASED [None]
  - FIBROSIS [None]
  - MICROANGIOPATHY [None]
  - MYELODYSPLASTIC SYNDROME [None]
  - MYELOFIBROSIS [None]
  - PANCYTOPENIA [None]
  - PLATELET COUNT ABNORMAL [None]
  - PYREXIA [None]
  - RHEUMATOID FACTOR POSITIVE [None]
  - SURGICAL PROCEDURE REPEATED [None]
